FAERS Safety Report 14006460 (Version 1)
Quarter: 2017Q3

REPORT INFORMATION
  Report Type: Spontaneous
  Country: US (occurrence: US)
  Receive Date: 20170925
  Receipt Date: 20170925
  Transmission Date: 20171128
  Serious: Yes (Other)
  Sender: FDA-Public Use
  Company Number: US-SUN PHARMACEUTICAL INDUSTRIES LTD-2016US-113571

PATIENT
  Age: 61 Year
  Sex: Male

DRUGS (3)
  1. CLOPIDOGREL [Suspect]
     Active Substance: CLOPIDOGREL BISULFATE
     Indication: ANTIPLATELET THERAPY
     Dosage: 75 MG, DAILY
     Route: 065
  2. ASPIRIN. [Suspect]
     Active Substance: ASPIRIN
     Indication: ANTIPLATELET THERAPY
     Dosage: 352 MG, DAILY
     Route: 065
  3. ASPIRIN. [Suspect]
     Active Substance: ASPIRIN
     Dosage: 81 MG
     Route: 065

REACTIONS (2)
  - Haemorrhage intracranial [Recovering/Resolving]
  - Hemiparesis [Unknown]
